FAERS Safety Report 7304035-0 (Version None)
Quarter: 2011Q1

REPORT INFORMATION
  Report Type: 
  Country: None (occurrence: None)
  Receive Date: 20110221
  Receipt Date: 20110211
  Transmission Date: 20110831
  Serious: Yes (Other)
  Sender: FDA-Public Use
  Company Number: IT-ABBOTT-11P-083-0704919-00

PATIENT
  Age: 40 Year
  Sex: Male

DRUGS (5)
  1. CYCLOSPORINE [Suspect]
     Indication: BEHCET'S SYNDROME
     Dosage: 3 MG/KG/DAY
     Dates: start: 20060201, end: 20061001
  2. INFLIXIMAB [Suspect]
     Route: 042
  3. CYCLOSPORINE [Suspect]
     Dosage: 3.5 MG/KG/DAY
     Dates: start: 20061001
  4. INFLIXIMAB [Suspect]
     Indication: PRODUCT USED FOR UNKNOWN INDICATION
     Dosage: WEEK 0,2 AND 6, THEN EVERY 2 WEEKS
     Dates: start: 20070901
  5. CYCLOSPORINE [Suspect]
     Dosage: 3 MG/KG/DAY

REACTIONS (1)
  - BEHCET'S SYNDROME [None]
